FAERS Safety Report 8578637-8 (Version None)
Quarter: 2012Q3

REPORT INFORMATION
  Report Type: 
  Country: None (occurrence: None)
  Receive Date: 20120808
  Receipt Date: 20120730
  Transmission Date: 20120928
  Serious: Yes (Life-Threatening, Other)
  Sender: FDA-Public Use
  Company Number: US-UCBSA-062882

PATIENT
  Age: 87 Year
  Sex: Male
  Weight: 84.8 kg

DRUGS (11)
  1. SPIRONOLACTONE [Suspect]
     Indication: CARDIAC FAILURE CONGESTIVE
     Dates: start: 20090121
  2. AMBIEN [Concomitant]
     Indication: INSOMNIA
     Dates: start: 20120501
  3. SYNTHROID [Concomitant]
     Indication: HYPOTHYROIDISM
     Dates: start: 20100101
  4. ZAROXOLYN [Suspect]
     Indication: CARDIAC FAILURE CONGESTIVE
     Dates: start: 20120129
  5. COUMADIN [Concomitant]
     Indication: ATRIAL FIBRILLATION
     Dates: start: 20120516
  6. TORSEMIDE [Suspect]
     Indication: CARDIAC FAILURE CONGESTIVE
     Dates: start: 20100825
  7. LIPITOR [Concomitant]
     Indication: CORONARY ARTERY DISEASE
     Dates: start: 20091218
  8. ALLOPURINOL [Concomitant]
     Indication: GOUT
     Dates: start: 20101215
  9. COLCHICINE [Concomitant]
     Indication: GOUT
  10. COLCHICINE [Concomitant]
  11. TAFAMIDIS MEGLUMINE [Suspect]
     Indication: AMYLOIDOSIS
     Route: 048
     Dates: start: 20081205

REACTIONS (1)
  - RENAL FAILURE [None]
